FAERS Safety Report 9301722 (Version 1)
Quarter: 2013Q2

REPORT INFORMATION
  Report Type: Spontaneous
  Country: US (occurrence: US)
  Receive Date: 20130521
  Receipt Date: 20130521
  Transmission Date: 20140414
  Serious: Yes (Hospitalization, Disabling, Other)
  Sender: FDA-Public Use
  Company Number: US-009507513-0508USA02777

PATIENT
  Sex: Female

DRUGS (7)
  1. FOSAMAX [Suspect]
     Indication: BONE DENSITY DECREASED
     Dosage: 70 MG, QW
     Route: 048
     Dates: start: 20010303, end: 20050719
  2. NADOLOL [Concomitant]
  3. QUINAPRIL HYDROCHLORIDE [Concomitant]
  4. LEVOXYL [Concomitant]
  5. LIPITOR [Concomitant]
  6. DICLOFENAC [Concomitant]
  7. CLORAZEPATE DIPOTASSIUM [Concomitant]

REACTIONS (18)
  - Femur fracture [Not Recovered/Not Resolved]
  - Pain in extremity [Not Recovered/Not Resolved]
  - Osteoporosis [Unknown]
  - Stress fracture [Unknown]
  - Bone density decreased [Unknown]
  - Osteoarthritis [Unknown]
  - Bursitis [Unknown]
  - Fracture nonunion [Recovering/Resolving]
  - Open reduction of fracture [Unknown]
  - Device failure [Unknown]
  - Lumbar spinal stenosis [Unknown]
  - Intervertebral disc degeneration [Unknown]
  - Hypertension [Unknown]
  - Hypothyroidism [Unknown]
  - Gastrooesophageal reflux disease [Unknown]
  - Hypercholesterolaemia [Unknown]
  - Closed fracture manipulation [Unknown]
  - Skin cancer [Unknown]
